FAERS Safety Report 16328989 (Version 1)
Quarter: 2019Q2

REPORT INFORMATION
  Report Type: Spontaneous
  Country: US (occurrence: US)
  Receive Date: 20190519
  Receipt Date: 20190519
  Transmission Date: 20190711
  Serious: No
  Sender: FDA-Public Use
  Company Number: US-CONCORDIA PHARMACEUTICALS INC.-GSH201808-003042

PATIENT
  Sex: Female

DRUGS (2)
  1. RLFAMPIN [Suspect]
     Active Substance: RIFAMPIN
  2. PLAQUENIL [Suspect]
     Active Substance: HYDROXYCHLOROQUINE SULFATE

REACTIONS (1)
  - Drug hypersensitivity [Unknown]
